FAERS Safety Report 26132787 (Version 2)
Quarter: 2025Q4

REPORT INFORMATION
  Report Type: Spontaneous
  Country: US (occurrence: US)
  Receive Date: 20251208
  Receipt Date: 20251208
  Transmission Date: 20260119
  Serious: No
  Sender: SANDOZ
  Company Number: US-SANDOZ-SDZ2025US092520

PATIENT
  Sex: Female

DRUGS (1)
  1. ALBUTEROL SULFATE [Suspect]
     Active Substance: ALBUTEROL SULFATE
     Indication: Asthma exercise induced
     Dosage: UNK, Q2W (EVERY OTHER WEEK), (STRENGTH: 90MCG/DOS 200DOS 1ASP US3)
     Route: 065
     Dates: start: 202505

REACTIONS (4)
  - Chest pain [Not Recovered/Not Resolved]
  - Device breakage [Unknown]
  - Circumstance or information capable of leading to device use error [Unknown]
  - Device delivery system issue [Unknown]
